FAERS Safety Report 12959243 (Version 1)
Quarter: 2016Q4

REPORT INFORMATION
  Report Type: Report from Study
  Country: JP (occurrence: JP)
  Receive Date: 20161121
  Receipt Date: 20161121
  Transmission Date: 20170207
  Serious: Yes (Other)
  Sender: FDA-Public Use
  Company Number: JP-ASTELLAS-1997002640-FJ

PATIENT
  Age: 7 Year
  Sex: Male
  Weight: 21 kg

DRUGS (34)
  1. TACROLIMUS. [Suspect]
     Active Substance: TACROLIMUS
     Indication: IMMUNOSUPPRESSANT DRUG THERAPY
     Dosage: 0.5 MG, TWICE DAILY
     Route: 048
     Dates: start: 19961208, end: 19961208
  2. TACROLIMUS. [Suspect]
     Active Substance: TACROLIMUS
     Route: 048
     Dates: start: 19961215, end: 19961215
  3. METHYLPREDNISOLONE SODIUM SUCCINATE. [Concomitant]
     Active Substance: METHYLPREDNISOLONE SODIUM SUCCINATE
     Route: 048
     Dates: start: 19961210
  4. ZOVIRAX [Concomitant]
     Active Substance: ACYCLOVIR
     Indication: CONGENITAL ABSENCE OF BILE DUCTS
     Route: 042
     Dates: start: 19961204, end: 19961207
  5. TACROLIMUS. [Suspect]
     Active Substance: TACROLIMUS
     Dosage: 1.75 MG, TWICE DAILY
     Route: 048
     Dates: start: 19961209, end: 19961209
  6. TACROLIMUS. [Suspect]
     Active Substance: TACROLIMUS
     Dosage: 1.0 MG, TWICE DAILY
     Route: 048
     Dates: start: 19961213, end: 19961213
  7. METHYLPREDNISOLONE SODIUM SUCCINATE. [Concomitant]
     Active Substance: METHYLPREDNISOLONE SODIUM SUCCINATE
     Indication: CONGENITAL ABSENCE OF BILE DUCTS
     Route: 042
     Dates: start: 19961204, end: 19961206
  8. TIENAM [Concomitant]
     Active Substance: CILASTATIN SODIUM\IMIPENEM
     Indication: CONGENITAL ABSENCE OF BILE DUCTS
     Dosage: 0.75 MG, ONCE DAILY
     Route: 042
     Dates: start: 19961204, end: 19961209
  9. HABEKACIN                          /01069401/ [Concomitant]
     Indication: CONGENITAL ABSENCE OF BILE DUCTS
     Route: 042
     Dates: start: 19961213, end: 19961214
  10. TACROLIMUS. [Suspect]
     Active Substance: TACROLIMUS
     Dosage: 0.96 MG, ONCE DAILY
     Route: 042
     Dates: start: 19961206, end: 19961206
  11. TACROLIMUS. [Suspect]
     Active Substance: TACROLIMUS
     Dosage: 0.2 MG, ONCE DAILY
     Route: 042
     Dates: start: 19961208, end: 19961208
  12. DIFLUCAN [Concomitant]
     Active Substance: FLUCONAZOLE
     Indication: CONGENITAL ABSENCE OF BILE DUCTS
     Route: 042
     Dates: start: 19961204, end: 19961207
  13. TIENAM [Concomitant]
     Active Substance: CILASTATIN SODIUM\IMIPENEM
     Dosage: 0.25 MG, ONCE DAILY
     Route: 042
     Dates: start: 19961212, end: 19961212
  14. GAMMAGARD [Concomitant]
     Active Substance: HUMAN IMMUNOGLOBULIN G
     Indication: PRODUCT USED FOR UNKNOWN INDICATION
     Route: 042
     Dates: start: 19961204, end: 19961204
  15. GAMMAGARD [Concomitant]
     Active Substance: HUMAN IMMUNOGLOBULIN G
     Route: 042
     Dates: start: 19961211, end: 19961211
  16. PROSTANDIN                         /00501501/ [Concomitant]
     Indication: PRODUCT USED FOR UNKNOWN INDICATION
     Route: 042
     Dates: start: 19961204, end: 19961209
  17. TACROLIMUS. [Suspect]
     Active Substance: TACROLIMUS
     Dosage: 0.8 MG, ONCE DAILY
     Route: 042
     Dates: start: 19961205, end: 19961205
  18. TACROLIMUS. [Suspect]
     Active Substance: TACROLIMUS
     Dosage: 0.75 MG, ONCE DAILY
     Route: 042
     Dates: start: 19961207, end: 19961207
  19. TACROLIMUS. [Suspect]
     Active Substance: TACROLIMUS
     Dosage: 0.8 MG, ONCE DAILY
     Route: 042
     Dates: start: 19961211, end: 19961211
  20. TACROLIMUS. [Suspect]
     Active Substance: TACROLIMUS
     Route: 048
     Dates: start: 19961214, end: 19961214
  21. METHYLPREDNISOLONE SODIUM SUCCINATE. [Concomitant]
     Active Substance: METHYLPREDNISOLONE SODIUM SUCCINATE
     Route: 042
     Dates: start: 19961207, end: 19961209
  22. TIENAM [Concomitant]
     Active Substance: CILASTATIN SODIUM\IMIPENEM
     Dosage: 0.5 MG, ONCE DAILY
     Route: 042
     Dates: start: 19961210, end: 19961211
  23. ZOVIRAX [Concomitant]
     Active Substance: ACYCLOVIR
     Route: 048
     Dates: start: 19961208
  24. TACROLIMUS. [Suspect]
     Active Substance: TACROLIMUS
     Dosage: 1.0 MG, ONCE DAILY
     Route: 048
     Dates: start: 19961211, end: 19961211
  25. DIFLUCAN [Concomitant]
     Active Substance: FLUCONAZOLE
     Route: 048
     Dates: start: 19961208
  26. GAMMAGARD [Concomitant]
     Active Substance: HUMAN IMMUNOGLOBULIN G
     Route: 042
     Dates: start: 19961206, end: 19961206
  27. FUTHAN [Concomitant]
     Active Substance: NAFAMOSTAT MESYLATE
     Indication: PRODUCT USED FOR UNKNOWN INDICATION
     Route: 042
     Dates: start: 19961204, end: 19961205
  28. TACROLIMUS. [Suspect]
     Active Substance: TACROLIMUS
     Indication: IMMUNOSUPPRESSANT DRUG THERAPY
     Dosage: 0.4 MG, ONCE DAILY
     Route: 042
     Dates: start: 19961204, end: 19961204
  29. TACROLIMUS. [Suspect]
     Active Substance: TACROLIMUS
     Route: 048
     Dates: start: 19961210, end: 19961210
  30. FOY [Concomitant]
     Active Substance: GABEXATE MESYLATE
     Indication: CONGENITAL ABSENCE OF BILE DUCTS
     Route: 042
     Dates: start: 19961206, end: 19961215
  31. TACROLIMUS. [Suspect]
     Active Substance: TACROLIMUS
     Route: 042
     Dates: start: 19961212, end: 19961212
  32. ZANTAC [Concomitant]
     Active Substance: RANITIDINE HYDROCHLORIDE
     Indication: CONGENITAL ABSENCE OF BILE DUCTS
     Route: 042
     Dates: start: 19961204, end: 19961207
  33. ZANTAC [Concomitant]
     Active Substance: RANITIDINE HYDROCHLORIDE
     Route: 048
     Dates: start: 19961208
  34. PENTCILLIN [Concomitant]
     Active Substance: PIPERACILLIN SODIUM
     Indication: PRODUCT USED FOR UNKNOWN INDICATION
     Dosage: 1.0 G, ONCE DAILY
     Route: 042
     Dates: start: 19961213, end: 19961214

REACTIONS (3)
  - Altered state of consciousness [Recovered/Resolved]
  - Hypertension [Recovered/Resolved]
  - Seizure [Recovered/Resolved]

NARRATIVE: CASE EVENT DATE: 19961215
